FAERS Safety Report 11835661 (Version 1)
Quarter: 2015Q4

REPORT INFORMATION
  Report Type: Spontaneous
  Country: US (occurrence: US)
  Receive Date: 20151215
  Receipt Date: 20151215
  Transmission Date: 20160305
  Serious: No
  Sender: FDA-Public Use
  Company Number: US-HOSPIRA-2608888

PATIENT
  Age: 70 Year
  Sex: Female
  Weight: 81 kg

DRUGS (5)
  1. NOVOLIN [Concomitant]
     Active Substance: INSULIN HUMAN
     Indication: DIABETES MELLITUS
     Dosage: Q HS, AT LEAST 10 YEARS
     Route: 058
  2. VANCOMYCIN HYDROCHLORIDE. [Suspect]
     Active Substance: VANCOMYCIN HYDROCHLORIDE
     Indication: DIABETIC FOOT
     Dosage: UNKNOWN
     Route: 042
     Dates: start: 20140903, end: 20141021
  3. VANCOMYCIN HYDROCHLORIDE. [Suspect]
     Active Substance: VANCOMYCIN HYDROCHLORIDE
     Indication: DIABETIC FOOT
     Dosage: UNKNOWN
     Route: 042
     Dates: start: 20140903, end: 20141021
  4. NOVOLIN [Concomitant]
     Active Substance: INSULIN HUMAN
     Indication: DIABETES MELLITUS
     Dosage: Q AM, AT LEAST 10 YEARS
     Route: 058
  5. RENVELA [Concomitant]
     Active Substance: SEVELAMER CARBONATE
     Indication: DRUG THERAPY
     Dosage: EACH MEAL
     Route: 048
     Dates: start: 2008

REACTIONS (5)
  - Product quality issue [Recovered/Resolved]
  - Decreased appetite [Recovered/Resolved]
  - Vomiting [Recovered/Resolved]
  - Drug administration error [Recovered/Resolved]
  - Nausea [Recovered/Resolved]

NARRATIVE: CASE EVENT DATE: 20140903
